FAERS Safety Report 8008782-7 (Version None)
Quarter: 2011Q4

REPORT INFORMATION
  Report Type: 
  Country: None (occurrence: None)
  Receive Date: 20111221
  Receipt Date: 20111208
  Transmission Date: 20120403
  Serious: Yes (Hospitalization)
  Sender: FDA-Public Use
  Company Number: GER/GER/11/0022274

PATIENT
  Sex: Female

DRUGS (1)
  1. ENALAPRIL MALEATE AND HYDROCHLOROTHIAZIDE [Suspect]
     Indication: PRODUCT USED FOR UNKNOWN INDICATION
     Dosage: 35 MG, 2 IN 1 D, ORAL
     Route: 048

REACTIONS (5)
  - HEADACHE [None]
  - REACTION TO DRUG EXCIPIENTS [None]
  - ABDOMINAL PAIN UPPER [None]
  - HYPERTENSION [None]
  - BLOOD PRESSURE DIASTOLIC INCREASED [None]
